FAERS Safety Report 14926735 (Version 1)
Quarter: 2018Q2

REPORT INFORMATION
  Report Type: Spontaneous
  Country: US (occurrence: US)
  Receive Date: 20180523
  Receipt Date: 20180523
  Transmission Date: 20180711
  Serious: Yes (Other)
  Sender: FDA-Public Use
  Company Number: US-JNJFOC-20180515967

PATIENT

DRUGS (1)
  1. BENADRYL [Suspect]
     Active Substance: DIPHENHYDRAMINE HYDROCHLORIDE
     Indication: PRODUCT USED FOR UNKNOWN INDICATION
     Dosage: TWICE IN LIFE
     Route: 065

REACTIONS (4)
  - Eye discharge [Unknown]
  - Loss of consciousness [Recovered/Resolved]
  - Product formulation issue [Unknown]
  - Hypersensitivity [Not Recovered/Not Resolved]
